FAERS Safety Report 20189187 (Version 1)
Quarter: 2021Q4

REPORT INFORMATION
  Report Type: Spontaneous
  Country: US (occurrence: US)
  Receive Date: 20211215
  Receipt Date: 20211215
  Transmission Date: 20220303
  Serious: No
  Sender: FDA-Public Use
  Company Number: US-ELI_LILLY_AND_COMPANY-US202112005346

PATIENT
  Sex: Female

DRUGS (6)
  1. FORTEO [Suspect]
     Active Substance: TERIPARATIDE
     Indication: Osteoporosis
     Dosage: UNK UNK, DAILY (EVERY NIGHT)
     Route: 065
     Dates: start: 2019
  2. FORTEO [Suspect]
     Active Substance: TERIPARATIDE
     Indication: Osteoporosis
     Dosage: UNK UNK, DAILY (EVERY NIGHT)
     Route: 065
     Dates: start: 2019
  3. FORTEO [Suspect]
     Active Substance: TERIPARATIDE
     Dosage: UNK UNK, QOD (EVERY OTHER DAY)
     Route: 065
     Dates: start: 2020
  4. FORTEO [Suspect]
     Active Substance: TERIPARATIDE
     Dosage: UNK UNK, QOD (EVERY OTHER DAY)
     Route: 065
     Dates: start: 2020
  5. FORTEO [Suspect]
     Active Substance: TERIPARATIDE
     Dosage: UNK UNK, OTHER (EVERY OTHER DAY OR 4 DAYS A WEEK)
     Route: 065
     Dates: start: 2020
  6. FORTEO [Suspect]
     Active Substance: TERIPARATIDE
     Dosage: UNK UNK, OTHER (EVERY OTHER DAY OR 4 DAYS A WEEK)
     Route: 065
     Dates: start: 2020

REACTIONS (3)
  - Sleep disorder due to general medical condition, insomnia type [Unknown]
  - Muscle spasms [Recovered/Resolved]
  - Inappropriate schedule of product administration [Unknown]
